FAERS Safety Report 16121118 (Version 1)
Quarter: 2019Q1

REPORT INFORMATION
  Report Type: Spontaneous
  Country: IT (occurrence: IT)
  Receive Date: 20190327
  Receipt Date: 20190327
  Transmission Date: 20190418
  Serious: Yes (Other)
  Sender: FDA-Public Use
  Company Number: IT-TEVA-2019-IT-1029899

PATIENT
  Age: 31 Year
  Sex: Male

DRUGS (6)
  1. DOXORUBICIN [Suspect]
     Active Substance: DOXORUBICIN
     Indication: EWING^S SARCOMA
     Dosage: ON DAY 1, EVERY 21 DAYS; THERAPY WAS CONTINUED UP TO SIX CYCLES
     Route: 042
     Dates: start: 201606
  2. ETOPOSIDE. [Suspect]
     Active Substance: ETOPOSIDE
     Indication: EWING^S SARCOMA
     Dosage: ON DAY 1-5 EVERY 21 DAYS; THERAPY WAS CONTINUED UP TO SIX CYCLES
     Route: 065
     Dates: start: 201606
  3. IFOSFAMIDE. [Suspect]
     Active Substance: IFOSFAMIDE
     Indication: EWING^S SARCOMA
     Dosage: ON DAY 1-5, EVERY 21 DAYS; THERAPY WAS CONTINUED UP TO SIX CYCLES
     Route: 042
     Dates: start: 201606
  4. MESNA. [Suspect]
     Active Substance: MESNA
     Indication: EWING^S SARCOMA
     Dosage: ON DAY 1-5, EVERY 21 DAYS; THERAPY WAS CONTINUED UP TO SIX CYCLES
     Route: 042
     Dates: start: 201606
  5. CYCLOPHOSPHAMIDE. [Suspect]
     Active Substance: CYCLOPHOSPHAMIDE
     Indication: EWING^S SARCOMA
     Dosage: ON DAY 1, EVERY 21 DAYS; THERAPY WAS CONTINUED UP TO SIX CYCLES
     Route: 042
     Dates: start: 201606
  6. VINCRISTINE [Suspect]
     Active Substance: VINCRISTINE
     Indication: EWING^S SARCOMA
     Dosage: ON DAY 1, EVERY 21 DAYS; THERAPY WAS CONTINUED UP TO SIX CYCLES
     Route: 042
     Dates: start: 201606

REACTIONS (3)
  - Vomiting [Unknown]
  - Febrile neutropenia [Recovered/Resolved]
  - Nausea [Unknown]

NARRATIVE: CASE EVENT DATE: 2016
